FAERS Safety Report 11239001 (Version 3)
Quarter: 2016Q2

REPORT INFORMATION
  Report Type: Report from Study
  Country: IE (occurrence: IE)
  Receive Date: 20150706
  Receipt Date: 20160620
  Transmission Date: 20160815
  Serious: Yes (Hospitalization)
  Sender: FDA-Public Use
  Company Number: IE-AMGEN-IRLSL2015065302

PATIENT
  Age: 77 Year
  Sex: Female

DRUGS (13)
  1. FOLIC ACID. [Concomitant]
     Active Substance: FOLIC ACID
     Dosage: 5 MG, QD
     Route: 050
  2. CELLCEPT [Concomitant]
     Active Substance: MYCOPHENOLATE MOFETIL\MYCOPHENOLATE MOFETIL HYDROCHLORIDE
     Dosage: 250 MG, QD
     Route: 050
  3. SODIUM BICARBONATE. [Concomitant]
     Active Substance: SODIUM BICARBONATE
     Dosage: 600 MG, QD
     Route: 050
  4. AMLODIPINE [Concomitant]
     Active Substance: AMLODIPINE BESYLATE
  5. ONE ALPHA [Concomitant]
     Active Substance: ALFACALCIDOL
     Dosage: 1 MG, QD
     Route: 050
  6. RAPORSIN [Concomitant]
     Active Substance: DOXAZOSIN MESYLATE
     Dosage: 8 MG, QD
     Route: 050
  7. PRAVAT [Concomitant]
     Dosage: 40 MG, QD
     Route: 050
  8. CARDURA [Concomitant]
     Active Substance: DOXAZOSIN MESYLATE
  9. ARANESP [Suspect]
     Active Substance: DARBEPOETIN ALFA
     Indication: CHRONIC KIDNEY DISEASE
     Dosage: 20 MUG, Q2WK
     Route: 058
     Dates: start: 20150323, end: 20160401
  10. OROVITE [Concomitant]
     Dosage: 1 MG, QD
     Route: 050
  11. ASPIRIN. [Concomitant]
     Active Substance: ASPIRIN
     Dosage: 75 MG, QD
     Route: 050
  12. DELTACORTRIL [Concomitant]
     Active Substance: PREDNISOLONE
     Dosage: 2.5 MG, QD
     Route: 050
  13. ISTOLDE [Concomitant]
     Dosage: 10 MG, QD
     Route: 050

REACTIONS (2)
  - Pneumonia [Recovering/Resolving]
  - Cough [Not Recovered/Not Resolved]
